FAERS Safety Report 23558919 (Version 3)
Quarter: 2024Q1

REPORT INFORMATION
  Report Type: Spontaneous
  Country: BR (occurrence: BR)
  Receive Date: 20240223
  Receipt Date: 20240328
  Transmission Date: 20240410
  Serious: Yes (Other)
  Sender: FDA-Public Use
  Company Number: BR-MYLANLABS-2024M1016622

PATIENT

DRUGS (1)
  1. LYRICA [Suspect]
     Active Substance: PREGABALIN
     Indication: Product used for unknown indication
     Dosage: UNK QD (2 OR 3 CAPSULES PER DAY)
     Route: 065
     Dates: start: 2017

REACTIONS (3)
  - Brain neoplasm [Unknown]
  - Trigeminal neuralgia [Unknown]
  - Product availability issue [Unknown]
